FAERS Safety Report 6716093-2 (Version None)
Quarter: 2010Q2

REPORT INFORMATION
  Report Type: 
  Country: None (occurrence: None)
  Receive Date: 20100507
  Receipt Date: 20100426
  Transmission Date: 20101027
  Serious: Yes (Hospitalization)
  Sender: FDA-Public Use
  Company Number: B0649594A

PATIENT
  Sex: Male

DRUGS (5)
  1. AVANDAMET [Suspect]
     Dosage: 1TAB TWICE PER DAY
     Route: 048
     Dates: end: 20100408
  2. GLUCOSAMINE [Suspect]
     Dosage: 1500MG PER DAY
     Route: 048
  3. GLYBURIDE [Suspect]
     Dosage: 5MG THREE TIMES PER DAY
     Route: 048
     Dates: end: 20100408
  4. LIPANTHYL [Concomitant]
     Route: 048
     Dates: end: 20100408
  5. MOPRAL [Concomitant]
     Route: 048
     Dates: end: 20100408

REACTIONS (5)
  - AGITATION [None]
  - CONFUSIONAL STATE [None]
  - DRUG INTERACTION [None]
  - HYPOGLYCAEMIC COMA [None]
  - LOSS OF CONSCIOUSNESS [None]
